FAERS Safety Report 7603078-7 (Version None)
Quarter: 2011Q3

REPORT INFORMATION
  Report Type: 
  Country: None (occurrence: None)
  Receive Date: 20110712
  Receipt Date: 20110707
  Transmission Date: 20111222
  Serious: Yes (Hospitalization)
  Sender: FDA-Public Use
  Company Number: US-BRISTOL-MYERS SQUIBB COMPANY-15889819

PATIENT
  Age: 59 Year
  Sex: Female
  Weight: 87 kg

DRUGS (17)
  1. LORTAB [Concomitant]
     Indication: PAIN
     Dosage: 1DF=5/500. UNIT NOT SPECIFIED
     Route: 048
     Dates: start: 20110101
  2. AMBIEN CR [Concomitant]
     Indication: INSOMNIA
     Route: 048
     Dates: start: 20110516
  3. PACLITAXEL [Suspect]
     Indication: BREAST CANCER
     Dosage: RECENT DOSE:20JUN11
     Route: 042
     Dates: start: 20110210
  4. CLARITIN [Concomitant]
     Indication: RESPIRATORY TRACT CONGESTION
     Route: 048
     Dates: start: 20110614
  5. MUCINEX [Concomitant]
     Indication: RESPIRATORY TRACT CONGESTION
     Route: 048
     Dates: start: 20110614
  6. CYTOXAN [Suspect]
     Indication: BREAST CANCER
     Dosage: RECENT DOSE:25APR11
     Route: 042
     Dates: start: 20110210
  7. DIOVAN [Concomitant]
     Indication: HYPERTENSION
     Route: 048
     Dates: start: 20010201
  8. PRILOSEC [Concomitant]
     Indication: GASTROOESOPHAGEAL REFLUX DISEASE
     Route: 042
     Dates: start: 20061001
  9. LEVOTHYROXINE SODIUM [Concomitant]
     Indication: HYPOTHYROIDISM
     Dosage: 1DF=0-125MG
     Route: 048
     Dates: start: 19911001
  10. MIRAPEX [Concomitant]
     Indication: RESTLESS LEGS SYNDROME
     Route: 048
     Dates: start: 20060101
  11. ZIAC [Concomitant]
     Indication: HYPERTENSION
     Route: 048
     Dates: start: 20010401
  12. ZOFRAN [Concomitant]
     Indication: NAUSEA
     Route: 048
     Dates: start: 20110328
  13. MUCINEX [Concomitant]
     Indication: EAR CONGESTION
     Route: 048
     Dates: start: 20110614
  14. ADRIAMYCIN PFS [Suspect]
     Indication: BREAST CANCER
     Dosage: RECENT DOSE:25APR11
     Route: 042
     Dates: start: 20110210
  15. CLARITIN [Concomitant]
     Indication: PARANASAL SINUS HYPERSECRETION
     Route: 048
     Dates: start: 20110614
  16. CLARITIN [Concomitant]
     Indication: EAR CONGESTION
     Route: 048
     Dates: start: 20110614
  17. MUCINEX [Concomitant]
     Indication: PARANASAL SINUS HYPERSECRETION
     Route: 048
     Dates: start: 20110614

REACTIONS (1)
  - HYPOXIA [None]
